FAERS Safety Report 4611988-8 (Version None)
Quarter: 2005Q1

REPORT INFORMATION
  Report Type: 
  Country: None (occurrence: None)
  Receive Date: 20050317
  Receipt Date: 20050204
  Transmission Date: 20050727
  Serious: Yes (Death, Hospitalization)
  Sender: FDA-Public Use
  Company Number: DE-MERCK-0502DEU00058

PATIENT
  Age: 90 Year
  Sex: Female
  Weight: 50 kg

DRUGS (7)
  1. ESOMEPRAZOLE MAGNESIUM [Concomitant]
     Route: 065
     Dates: start: 20040101
  2. VERAPAMIL HYDROCHLORIDE [Concomitant]
     Route: 065
     Dates: start: 20030101
  3. VIOXX [Suspect]
     Indication: PUBIC RAMI FRACTURE
     Route: 048
     Dates: start: 20040311, end: 20040319
  4. VIOXX [Suspect]
     Indication: FRACTURED ISCHIUM
     Route: 048
     Dates: start: 20040311, end: 20040319
  5. DIPYRONE [Concomitant]
     Route: 048
     Dates: start: 20040311
  6. ACETYLDIGOXIN [Concomitant]
     Route: 065
     Dates: start: 19990101
  7. HYDROCHLOROTHIAZIDE AND RAMIPRIL [Concomitant]
     Route: 065
     Dates: start: 19990101

REACTIONS (5)
  - CHOLANGITIS [None]
  - COMA HEPATIC [None]
  - HEPATIC FAILURE [None]
  - JAUNDICE [None]
  - MALIGNANT NEOPLASM OF AMPULLA OF VATER [None]
